FAERS Safety Report 23247945 (Version 1)
Quarter: 2023Q4

REPORT INFORMATION
  Report Type: Spontaneous
  Country: CA (occurrence: CA)
  Receive Date: 20231130
  Receipt Date: 20231130
  Transmission Date: 20240110
  Serious: Yes (Other)
  Sender: FDA-Public Use
  Company Number: CA-AstraZeneca-2020SF40194

PATIENT
  Age: 75 Year
  Sex: Female

DRUGS (4)
  1. ALVESCO [Suspect]
     Active Substance: CICLESONIDE
     Route: 055
  2. FLUTICASONE FUROATE\VILANTEROL TRIFENATATE [Suspect]
     Active Substance: FLUTICASONE FUROATE\VILANTEROL TRIFENATATE
     Route: 055
  3. SPIRIVA [Suspect]
     Active Substance: TIOTROPIUM BROMIDE MONOHYDRATE
  4. VENTOLIN [Suspect]
     Active Substance: ALBUTEROL SULFATE

REACTIONS (3)
  - Full blood count abnormal [Unknown]
  - Therapeutic product effect incomplete [Unknown]
  - Asthma [Unknown]
